FAERS Safety Report 11248341 (Version 1)
Quarter: 2015Q3

REPORT INFORMATION
  Report Type: Spontaneous
  Country: US (occurrence: US)
  Receive Date: 20150708
  Receipt Date: 20150708
  Transmission Date: 20151125
  Serious: No
  Sender: FDA-Public Use
  Company Number: US-ELI_LILLY_AND_COMPANY-US200811004508

PATIENT
  Age: 73 Year
  Sex: Male

DRUGS (3)
  1. FLUOXETINE HYDROCHLORIDE. [Suspect]
     Active Substance: FLUOXETINE HYDROCHLORIDE
     Dosage: 30 MG, DAILY (1/D)
     Route: 065
  2. FLUOXETINE HYDROCHLORIDE. [Suspect]
     Active Substance: FLUOXETINE HYDROCHLORIDE
     Dosage: 40 MG, 2/D
     Route: 065
  3. BUPROPION. [Concomitant]
     Active Substance: BUPROPION
     Dosage: 150 MG, UNKNOWN
     Route: 065

REACTIONS (2)
  - Social problem [Recovered/Resolved]
  - Affective disorder [Recovered/Resolved]
